FAERS Safety Report 6049056-3 (Version None)
Quarter: 2009Q1

REPORT INFORMATION
  Report Type: 
  Country: None (occurrence: None)
  Receive Date: 20090123
  Receipt Date: 20090112
  Transmission Date: 20090719
  Serious: Yes (Death, Other)
  Sender: FDA-Public Use
  Company Number: US-ROCHE-607837

PATIENT
  Age: 32 Year
  Sex: Male

DRUGS (16)
  1. CLONAZEPAM [Suspect]
     Indication: DRUG USE FOR UNKNOWN INDICATION
     Dosage: OVERDOSE, ROUTE REPORTED AS INGESTION
     Route: 048
  2. CLONAZEPAM [Suspect]
     Route: 048
  3. MARIJUANA [Suspect]
     Indication: DRUG USE FOR UNKNOWN INDICATION
     Dosage: OVERDOSE, ROUTE REPORTED AS INGESTION
     Route: 048
  4. MARIJUANA [Suspect]
     Route: 048
  5. LITHIUM CARBONATE [Suspect]
     Indication: DRUG USE FOR UNKNOWN INDICATION
     Dosage: OVERDOSE, ROUTE REPORTED AS INGESTION
     Route: 048
  6. LITHIUM CARBONATE [Suspect]
     Route: 048
  7. SERTRALINE [Suspect]
     Indication: DRUG USE FOR UNKNOWN INDICATION
     Dosage: OVERDOSE, ROUTE REPORTED AS INGESTION
     Route: 048
  8. SERTRALINE [Suspect]
     Route: 048
  9. QUETIAPINE FUMARATE [Suspect]
     Indication: DRUG USE FOR UNKNOWN INDICATION
     Dosage: OVERDOSE, ROUTE REPORTED AS INGESTION
     Route: 048
  10. QUETIAPINE FUMARATE [Suspect]
     Route: 048
  11. DIPHENHYDRAMINE HCL [Suspect]
     Indication: DRUG USE FOR UNKNOWN INDICATION
     Dosage: OVERDOSE, ROUTE REPORTED AS INGESTION
     Route: 048
  12. DIPHENHYDRAMINE HCL [Suspect]
     Route: 048
  13. METHADONE HCL [Suspect]
     Indication: DRUG USE FOR UNKNOWN INDICATION
     Dosage: OVERDOSE, ROUTE REPORTED AS INGESTION
     Route: 048
  14. METHADONE HCL [Suspect]
     Route: 048
  15. ACETAMINOPHEN [Suspect]
     Indication: DRUG USE FOR UNKNOWN INDICATION
     Dosage: OVERDOSE, ROUTE REPORTED AS INGESTION; DRUG NAME REPORTED AS ACETAMINOPHEN/HYDROCODONE
     Route: 048
  16. ACETAMINOPHEN [Suspect]
     Route: 048

REACTIONS (3)
  - CARDIAC ARREST [None]
  - COMPLETED SUICIDE [None]
  - RESPIRATORY ARREST [None]
